FAERS Safety Report 16296949 (Version 2)
Quarter: 2019Q4

REPORT INFORMATION
  Report Type: Spontaneous
  Country: BR (occurrence: BR)
  Receive Date: 20190510
  Receipt Date: 20191015
  Transmission Date: 20200122
  Serious: Yes (Hospitalization, Other)
  Sender: FDA-Public Use
  Company Number: BR-GLAXOSMITHKLINE-BR2019GSK079877

PATIENT
  Age: 66 Year
  Sex: Female

DRUGS (6)
  1. ARADOIS [Suspect]
     Active Substance: LOSARTAN POTASSIUM
     Dosage: 1 DF, 1D, (1 TABLET AT NIGHT)
  2. ARADOIS [Suspect]
     Active Substance: LOSARTAN POTASSIUM
     Indication: HYPERTENSION
     Dosage: 1 DF, BID, (1 TABLET AT NIGHT AND MORNING)
     Dates: start: 201901
  3. COMBODART [Suspect]
     Active Substance: DUTASTERIDE\TAMSULOSIN
     Indication: PRODUCT USED FOR UNKNOWN INDICATION
     Dosage: 1 DF, 1D, 1 CAPSULE AT NIGHT
     Dates: end: 20190424
  4. CLOPIDOGREL [Suspect]
     Active Substance: CLOPIDOGREL BISULFATE
     Indication: STENT PLACEMENT
     Dosage: UNK, QD
  5. SOMALGIN CARDIO [Suspect]
     Active Substance: ASPIRIN\DIHYDROXYALUMINUM AMINOACETATE ANHYDROUS\MAGNESIUM CARBONATE
     Indication: STENT PLACEMENT
     Dosage: 100 MG, QD
  6. ROSUVASTATIN. [Concomitant]
     Active Substance: ROSUVASTATIN
     Indication: PRODUCT USED FOR UNKNOWN INDICATION
     Dosage: 10 MG, QD

REACTIONS (10)
  - Fall [Unknown]
  - Coronary artery occlusion [Recovered/Resolved]
  - Limb injury [Unknown]
  - Stent placement [Recovered/Resolved]
  - Clavicle fracture [Unknown]
  - Syncope [Recovered/Resolved]
  - Head injury [Unknown]
  - Cerebral haemorrhage [Unknown]
  - Weight decreased [Unknown]
  - Angioplasty [Recovered/Resolved]

NARRATIVE: CASE EVENT DATE: 20190125
